FAERS Safety Report 25468414 (Version 1)
Quarter: 2025Q2

REPORT INFORMATION
  Report Type: Spontaneous
  Country: GB (occurrence: GB)
  Receive Date: 20250623
  Receipt Date: 20250623
  Transmission Date: 20250717
  Serious: Yes (Disabling, Other)
  Sender: BOEHRINGER INGELHEIM
  Company Number: None

PATIENT
  Age: 75 Year
  Sex: Male
  Weight: 67 kg

DRUGS (5)
  1. EMPAGLIFLOZIN [Suspect]
     Active Substance: EMPAGLIFLOZIN
     Indication: Heart failure with reduced ejection fraction
  2. BISOPROLOL [Concomitant]
     Active Substance: BISOPROLOL
     Indication: Cardiac failure
  3. SACUBITRIL AND SACUBITRIL/VALSARTAN AND VALSARTAN [Concomitant]
     Indication: Heart failure with reduced ejection fraction
  4. ATORVASTATIN [Concomitant]
     Active Substance: ATORVASTATIN
     Indication: Heart failure with reduced ejection fraction
  5. ASPIRIN [Concomitant]
     Active Substance: ASPIRIN
     Indication: Heart failure with reduced ejection fraction

REACTIONS (3)
  - Mood altered [Unknown]
  - Amnesia [Unknown]
  - Abnormal loss of weight [Recovered/Resolved]
